FAERS Safety Report 17283705 (Version 7)
Quarter: 2020Q4

REPORT INFORMATION
  Report Type: Spontaneous
  Country: US (occurrence: US)
  Receive Date: 20200117
  Receipt Date: 20201020
  Transmission Date: 20210113
  Serious: Yes (Other)
  Sender: FDA-Public Use
  Company Number: US-PFIZER INC-2020018600

PATIENT
  Age: 67 Year
  Sex: Female
  Weight: 68.04 kg

DRUGS (5)
  1. LYRICA [Suspect]
     Active Substance: PREGABALIN
     Indication: NERVE INJURY
     Dosage: 300MG DAILY  (TWO CAPSULE 75MG  IN THE MORNING AND TWO AT NIGHT)
     Dates: start: 2019
  2. PREMARIN [Concomitant]
     Active Substance: ESTROGENS, CONJUGATED
     Dosage: UNK
  3. SULINDAC. [Concomitant]
     Active Substance: SULINDAC
     Dosage: 200 MG, 2X/DAY
     Route: 048
  4. LYRICA [Suspect]
     Active Substance: PREGABALIN
     Indication: ARTHRITIS
  5. SULINDAC. [Concomitant]
     Active Substance: SULINDAC
     Dosage: 200 MG, 1X/DAY(SHE TAKES IT ONLY ONCE A DAY AS IT HURTS HER STOMACH)

REACTIONS (10)
  - Malaise [Unknown]
  - Withdrawal syndrome [Unknown]
  - Intentional product use issue [Unknown]
  - Upper limb fracture [Unknown]
  - Bronchitis [Unknown]
  - Carpal tunnel syndrome [Unknown]
  - Hypophagia [Unknown]
  - Feeling abnormal [Unknown]
  - Influenza [Unknown]
  - Weight decreased [Unknown]

NARRATIVE: CASE EVENT DATE: 201912
